FAERS Safety Report 6310301-8 (Version None)
Quarter: 2009Q3

REPORT INFORMATION
  Report Type: 
  Country: None (occurrence: None)
  Receive Date: 20090814
  Receipt Date: 20090806
  Transmission Date: 20100115
  Serious: Yes (Other)
  Sender: FDA-Public Use
  Company Number: PHHY2009BR33076

PATIENT
  Age: 29 Year
  Sex: Female
  Weight: 43 kg

DRUGS (5)
  1. TEGRETOL [Suspect]
     Indication: PETIT MAL EPILEPSY
     Dosage: 5 ML DAILY
     Route: 048
  2. DEPAKOTE [Concomitant]
     Dosage: 500 MG 1 TABLET DAILY
     Route: 048
  3. DEPAKENE [Concomitant]
     Dosage: 500 MG 1 TABLET DAILY
     Route: 048
  4. HIDANTAL [Concomitant]
     Dosage: 100 MG 1 TABLET DAILY
     Route: 048
  5. RIVOTRIL [Concomitant]
     Dosage: 200 MG, BID
     Route: 048

REACTIONS (5)
  - AMNESIA [None]
  - EPILEPSY [None]
  - NAUSEA [None]
  - PARAESTHESIA [None]
  - TREMOR [None]
